FAERS Safety Report 13743532 (Version 10)
Quarter: 2019Q3

REPORT INFORMATION
  Report Type: Report from Study
  Country: US (occurrence: US)
  Receive Date: 20170711
  Receipt Date: 20190822
  Transmission Date: 20191004
  Serious: Yes (Hospitalization, Other)
  Sender: FDA-Public Use
  Company Number: US-ACTELION-A-US2017-153738

PATIENT
  Age: 78 Year
  Sex: Female
  Weight: 53.97 kg

DRUGS (20)
  1. ADCIRCA [Concomitant]
     Active Substance: TADALAFIL
     Dosage: 20 UNK, UNK
     Dates: start: 201701
  2. VITAMIN D [Concomitant]
     Active Substance: VITAMIN D NOS
     Dosage: 600 MG, QD
  3. SELENIUM [Concomitant]
     Active Substance: SELENIUM
     Dosage: 50 MG, QD
     Dates: end: 20170627
  4. L-LYSINE [Concomitant]
     Active Substance: LYSINE
     Dosage: 500 MG, QD
  5. OPSUMIT [Suspect]
     Active Substance: MACITENTAN
     Indication: PULMONARY HYPERTENSION
     Dosage: 10 MG, QD
     Route: 048
     Dates: start: 20170418
  6. BABY ASPIRIN [Concomitant]
     Active Substance: ASPIRIN
     Dosage: 81 MG, QD
  7. LASIX [Concomitant]
     Active Substance: FUROSEMIDE
     Dosage: 40 MG, QOD
     Dates: start: 201701
  8. FOLIC ACID. [Concomitant]
     Active Substance: FOLIC ACID
     Dosage: 1 MG, QD
  9. TURMERIC [Concomitant]
     Active Substance: HERBALS\TURMERIC
     Dosage: UNK, QD
  10. VITAMIN C [Concomitant]
     Active Substance: ASCORBIC ACID
     Dosage: UNK, QD
     Dates: start: 201706
  11. ELIQUIS [Concomitant]
     Active Substance: APIXABAN
  12. ADCIRCA [Concomitant]
     Active Substance: TADALAFIL
     Dosage: 40 MG, QD
     Dates: start: 20170403
  13. CALCIUM [Concomitant]
     Active Substance: CALCIUM
     Dosage: 600 MG, QD
  14. HYDROXYUREA. [Concomitant]
     Active Substance: HYDROXYUREA
     Dosage: 500 MG, QD
  15. COUMADIN [Concomitant]
     Active Substance: WARFARIN SODIUM
     Dosage: UNK MG, QD
     Dates: start: 20160302
  16. HYDROXYUREA. [Concomitant]
     Active Substance: HYDROXYUREA
     Dosage: 1000 MG, QOD
     Dates: start: 2012
  17. LUTEIN [Concomitant]
     Active Substance: LUTEIN
     Dosage: 20 MG, QD
  18. TYVASO [Suspect]
     Active Substance: TREPROSTINIL
     Indication: PRODUCT USED FOR UNKNOWN INDICATION
     Route: 065
  19. GLUCOSAMINE CHONDROITIN + MSM [Concomitant]
     Active Substance: CHONDROITIN SULFATE (BOVINE)\DIMETHYL SULFONE\GLUCOSAMINE SULFATE
     Dosage: UNK
     Dates: end: 20170627
  20. ACIDOPHILUS PROBIOTIC [Concomitant]
     Dosage: UNK, QD

REACTIONS (10)
  - Hospitalisation [Unknown]
  - Headache [Unknown]
  - Hysterectomy [Unknown]
  - Atrial fibrillation [Unknown]
  - Transfusion [Not Recovered/Not Resolved]
  - Condition aggravated [Not Recovered/Not Resolved]
  - Cough [Not Recovered/Not Resolved]
  - Haemoglobin decreased [Not Recovered/Not Resolved]
  - Neoplasm malignant [Unknown]
  - Thalassaemia [Not Recovered/Not Resolved]

NARRATIVE: CASE EVENT DATE: 201705
